FAERS Safety Report 10175421 (Version 1)
Quarter: 2014Q2

REPORT INFORMATION
  Report Type: Report from Study
  Country: BR (occurrence: BR)
  Receive Date: 20140515
  Receipt Date: 20140515
  Transmission Date: 20141212
  Serious: Yes (Other)
  Sender: FDA-Public Use
  Company Number: BR-US-EMD SERONO, INC.-7290752

PATIENT
  Age: 31 Year
  Sex: Female

DRUGS (2)
  1. REBIF [Suspect]
     Indication: RELAPSING-REMITTING MULTIPLE SCLEROSIS
     Dates: start: 201208
  2. PROPANOLOL                         /00030001/ [Concomitant]
     Indication: HEADACHE

REACTIONS (2)
  - Hepatic neoplasm [Unknown]
  - Multiple sclerosis relapse [Unknown]
